FAERS Safety Report 15284118 (Version 1)
Quarter: 2018Q3

REPORT INFORMATION
  Report Type: Spontaneous
  Country: US (occurrence: US)
  Receive Date: 20180816
  Receipt Date: 20180816
  Transmission Date: 20181010
  Serious: No
  Sender: FDA-Public Use
  Company Number: US-AUROBINDO-AUR-APU-2018-038034

PATIENT
  Sex: Female
  Weight: 58.05 kg

DRUGS (1)
  1. OLMESARTAN MEDOXOMIL 40 MG [Suspect]
     Active Substance: OLMESARTAN MEDOXOMIL
     Indication: BLOOD PRESSURE MEASUREMENT
     Dosage: 1 DOSAGE FORM, DAILY
     Route: 065
     Dates: start: 20180720, end: 20180721

REACTIONS (2)
  - Aphonia [Unknown]
  - Dyspnoea [Unknown]
